FAERS Safety Report 9365055 (Version 1)
Quarter: 2013Q2

REPORT INFORMATION
  Report Type: Spontaneous
  Country: US (occurrence: US)
  Receive Date: 20130624
  Receipt Date: 20130624
  Transmission Date: 20140414
  Serious: Yes (Hospitalization, Other)
  Sender: FDA-Public Use
  Company Number: US-PFIZER INC-2013184230

PATIENT
  Age: 72 Year
  Sex: Female

DRUGS (6)
  1. AROMASIN [Suspect]
     Indication: BREAST CANCER FEMALE
     Dosage: UNK
     Dates: end: 201306
  2. REQUIP [Concomitant]
     Dosage: UNK
  3. ALAVERT [Concomitant]
     Dosage: UNK
  4. ARICEPT [Concomitant]
     Dosage: UNK
  5. NAMENDA [Concomitant]
     Dosage: UNK
  6. HYDROCHLOROTHIAZIDE [Concomitant]
     Dosage: UNK

REACTIONS (2)
  - Cardiac failure [Unknown]
  - Ejection fraction abnormal [Unknown]
